FAERS Safety Report 10445987 (Version 3)
Quarter: 2017Q1

REPORT INFORMATION
  Report Type: Spontaneous
  Country: US (occurrence: US)
  Receive Date: 20140910
  Receipt Date: 20170224
  Transmission Date: 20170428
  Serious: Yes (Death, Hospitalization, Other)
  Sender: FDA-Public Use
  Company Number: US-MERCK-1409USA004473

PATIENT
  Sex: Female
  Weight: 72.56 kg

DRUGS (1)
  1. JANUVIA [Suspect]
     Active Substance: SITAGLIPTIN PHOSPHATE
     Indication: TYPE 2 DIABETES MELLITUS
     Dosage: 50 MG, QD
     Route: 048
     Dates: start: 20120330, end: 20130715

REACTIONS (22)
  - Pancreatic carcinoma metastatic [Unknown]
  - Arthritis [Unknown]
  - Hepatic lesion [Unknown]
  - Osteoporosis [Unknown]
  - Haematemesis [Unknown]
  - Hypertension [Unknown]
  - Haemorrhoids [Unknown]
  - Pulmonary mass [Unknown]
  - Cholecystectomy [Unknown]
  - Gastrooesophageal reflux disease [Unknown]
  - Hyperlipidaemia [Unknown]
  - Constipation [Unknown]
  - Drug ineffective [Unknown]
  - Cholecystitis [Not Recovered/Not Resolved]
  - Hiatus hernia [Unknown]
  - Disease complication [Fatal]
  - Spinal osteoarthritis [Unknown]
  - Gallbladder adenocarcinoma [Unknown]
  - Haemangioma of liver [Unknown]
  - Tonsillectomy [Unknown]
  - Appendicectomy [Unknown]
  - Diabetes mellitus inadequate control [Unknown]

NARRATIVE: CASE EVENT DATE: 20130411
